FAERS Safety Report 7191404-5 (Version None)
Quarter: 2010Q4

REPORT INFORMATION
  Report Type: 
  Country: None (occurrence: None)
  Receive Date: 20101221
  Receipt Date: 20101221
  Transmission Date: 20110411
  Serious: Yes (Life-Threatening)
  Sender: FDA-Public Use
  Company Number: None

PATIENT
  Age: 40 Year
  Sex: Female
  Weight: 74.8435 kg

DRUGS (1)
  1. CARBOCAINE WITHOUT EPI (MEPIVACAINE) [Suspect]
     Indication: DENTAL OPERATION
     Dosage: INJECTION
     Dates: start: 20101114

REACTIONS (9)
  - ANXIETY [None]
  - DISORIENTATION [None]
  - DIZZINESS [None]
  - DYSPNOEA [None]
  - HEART RATE INCREASED [None]
  - HYPERTENSION [None]
  - HYPOAESTHESIA [None]
  - PULSE PRESSURE DECREASED [None]
  - SOMNOLENCE [None]
